FAERS Safety Report 4644444-1 (Version None)
Quarter: 2005Q2

REPORT INFORMATION
  Report Type: 
  Country: None (occurrence: None)
  Receive Date: 20050331
  Receipt Date: 20041202
  Transmission Date: 20051028
  Serious: No
  Sender: FDA-Public Use
  Company Number: 04P-163-0282196-00

PATIENT
  Age: 70 Year
  Sex: Female
  Weight: 58.9676 kg

DRUGS (3)
  1. HUMIRA [Suspect]
     Indication: RHEUMATOID ARTHRITIS
     Dosage: 40 MG, 1 IN 2 M, SUBCUTANEOUS;  40 MG, 1 IN 2 M, SUBCUTANEOUS
     Route: 058
     Dates: start: 20040501, end: 20040801
  2. HUMIRA [Suspect]
     Indication: RHEUMATOID ARTHRITIS
     Dosage: 40 MG, 1 IN 2 M, SUBCUTANEOUS;  40 MG, 1 IN 2 M, SUBCUTANEOUS
     Route: 058
     Dates: start: 20041001
  3. METHOTREXATE [Concomitant]

REACTIONS (3)
  - INJECTION SITE PRURITUS [None]
  - INJECTION SITE RASH [None]
  - UNEVALUABLE EVENT [None]
